FAERS Safety Report 5214031-5 (Version None)
Quarter: 2007Q1

REPORT INFORMATION
  Report Type: 
  Country: None (occurrence: None)
  Receive Date: 20070122
  Receipt Date: 20070108
  Transmission Date: 20070707
  Serious: Yes (Other)
  Sender: FDA-Public Use
  Company Number: US-ELI_LILLY_AND_COMPANY-US200701001538

PATIENT
  Age: 30 Year
  Sex: Female
  Weight: 129.25 kg

DRUGS (2)
  1. ZYPREXA [Suspect]
     Indication: BIPOLAR DISORDER
     Dosage: 40 MG, UNK
     Route: 048
     Dates: start: 20011101, end: 20020101
  2. ZYPREXA [Suspect]
     Dosage: 20 MG, DAILY (1/D)
     Route: 048
     Dates: start: 20040101, end: 20050101

REACTIONS (8)
  - BLOOD GLUCOSE INCREASED [None]
  - DIABETES MELLITUS NON-INSULIN-DEPENDENT [None]
  - EYE HAEMORRHAGE [None]
  - HYPERPHAGIA [None]
  - LIMB DISCOMFORT [None]
  - PRESCRIBED OVERDOSE [None]
  - VISUAL DISTURBANCE [None]
  - WEIGHT INCREASED [None]
